FAERS Safety Report 8128149-0 (Version None)
Quarter: 2012Q1

REPORT INFORMATION
  Report Type: 
  Country: None (occurrence: None)
  Receive Date: 20120210
  Receipt Date: 20120207
  Transmission Date: 20120608
  Serious: Yes (Hospitalization, Other)
  Sender: FDA-Public Use
  Company Number: US-PFIZER INC-2012034153

PATIENT
  Sex: Male

DRUGS (7)
  1. AMBIEN [Suspect]
     Dosage: UNK
  2. BENAZEPRIL HYDROCHLORIDE [Suspect]
  3. NORVASC [Suspect]
     Dosage: 5 MG, 1X/DAY (1 TABLET DAILY)
  4. PRAVASTATIN [Suspect]
  5. LEVOTHROID [Suspect]
     Dosage: UNK
  6. CLONIDINE [Suspect]
     Dosage: UNK
  7. TRAZODONE HCL [Suspect]
     Dosage: UNK

REACTIONS (1)
  - COLON CANCER [None]
